FAERS Safety Report 8336651 (Version 8)
Quarter: 2012Q4

REPORT INFORMATION
  Report Type: 
  Country: US (occurrence: US)
  Receive Date: 20120113
  Receipt Date: 20121015
  Transmission Date: 20130627
  Serious: Yes (Hospitalization, Disabling, Other)
  Sender: FDA-Public Use
  Company Number: US-MSD-1201USA01459

PATIENT

DRUGS (4)
  1. FOSAMAX [Suspect]
     Indication: OSTEOPOROSIS
     Dosage: 10 mg, UNK
     Route: 048
     Dates: start: 19960719
  2. FOSAMAX [Suspect]
     Dosage: 70 mg, UNK
     Route: 048
     Dates: start: 20011008
  3. NORVASC [Concomitant]
     Dosage: UNK
     Route: 048
     Dates: start: 1980
  4. FOSAMAX [Suspect]
     Indication: OSTEOPOROSIS
     Dosage: 70 mg, UNK
     Route: 048
     Dates: start: 20080425

REACTIONS (36)
  - Tibia fracture [Unknown]
  - Palpitations [Unknown]
  - Low turnover osteopathy [Unknown]
  - Vitamin D deficiency [Unknown]
  - Thyroid neoplasm [Unknown]
  - Blood cholesterol increased [Unknown]
  - Chronic obstructive pulmonary disease [Not Recovered/Not Resolved]
  - Synovial cyst [Unknown]
  - Meniscus injury [Unknown]
  - Fall [Unknown]
  - Cardiac murmur [Unknown]
  - Gastrooesophageal reflux disease [Unknown]
  - Urinary incontinence [Unknown]
  - Oedema peripheral [Unknown]
  - Pyrexia [Unknown]
  - Osteopenia [Unknown]
  - Intervertebral disc space narrowing [Unknown]
  - Osteoma [Unknown]
  - Forearm fracture [Recovering/Resolving]
  - Atelectasis [Unknown]
  - Pain in extremity [Unknown]
  - Femur fracture [Unknown]
  - Somnolence [Unknown]
  - Cardiomegaly [Unknown]
  - Insomnia [Unknown]
  - Vitamin B12 deficiency [Unknown]
  - Uterine disorder [Unknown]
  - Osteoarthritis [Unknown]
  - Sciatica [Unknown]
  - Skin irritation [Unknown]
  - Femur fracture [Unknown]
  - Adverse drug reaction [Unknown]
  - Chest pain [Unknown]
  - Foot fracture [Recovered/Resolved]
  - Foot deformity [Unknown]
  - Bunion [Unknown]
